FAERS Safety Report 15455665 (Version 4)
Quarter: 2019Q1

REPORT INFORMATION
  Report Type: Spontaneous
  Country: US (occurrence: US)
  Receive Date: 20181002
  Receipt Date: 20190102
  Transmission Date: 20190417
  Serious: Yes (Hospitalization)
  Sender: FDA-Public Use
  Company Number: US-PARI RESPIRATORY EQUIPMENT, INC.-2018PAR00059

PATIENT
  Age: 7 Year
  Sex: Male
  Weight: 28.12 kg

DRUGS (9)
  1. TOBRAMYCIN. [Suspect]
     Active Substance: TOBRAMYCIN
     Indication: CYSTIC FIBROSIS
     Dosage: UNK
     Route: 055
     Dates: start: 2015
  2. LEVALBUTEROL. [Concomitant]
     Active Substance: LEVALBUTEROL
     Dosage: 1.35, 2X/DAY MORNING AND NIGHT
  3. HYPERTONIC SALINE [Concomitant]
     Active Substance: SODIUM CHLORIDE
     Dosage: UNK, 2X/DAY MORNING AND NIGHT
  4. AZITHROMYCIN ANHYDROUS. [Concomitant]
     Active Substance: AZITHROMYCIN ANHYDROUS
     Dosage: UNK, 3X/WEEK ON MONDAY, WEDNESDAY, AND FRIDAY
  5. MULTIVITAMIN [Concomitant]
     Active Substance: VITAMINS
  6. CREON [Concomitant]
     Active Substance: PANCRELIPASE AMYLASE\PANCRELIPASE LIPASE\PANCRELIPASE PROTEASE
     Dosage: UNK
  7. PULMOZYME [Concomitant]
     Active Substance: DORNASE ALFA
     Dosage: UNK, 2X/DAY MORNING AND NIGHT
  8. KITABIS PAK [Suspect]
     Active Substance: TOBRAMYCIN
     Indication: CYSTIC FIBROSIS
     Dosage: 300 MG, 2X/DAY
     Route: 055
     Dates: start: 201806, end: 2018
  9. KITABIS PAK [Suspect]
     Active Substance: TOBRAMYCIN
     Dosage: UNK, 28 DAYS ON AND 28 DAYS OFF
     Dates: start: 201809

REACTIONS (7)
  - Pyrexia [Recovering/Resolving]
  - Chest pain [Not Recovered/Not Resolved]
  - Alanine aminotransferase increased [Unknown]
  - Aspartate aminotransferase increased [Unknown]
  - Pulmonary function test decreased [Recovering/Resolving]
  - Pneumonia [Recovered/Resolved]
  - Culture positive [Unknown]

NARRATIVE: CASE EVENT DATE: 20180830
